FAERS Safety Report 11917372 (Version 1)
Quarter: 2016Q1

REPORT INFORMATION
  Report Type: Spontaneous
  Country: DE (occurrence: DE)
  Receive Date: 20160114
  Receipt Date: 20160114
  Transmission Date: 20160526
  Serious: Yes (Other)
  Sender: FDA-Public Use
  Company Number: DE-PFIZER INC-2016011093

PATIENT
  Age: 49 Year
  Sex: Male

DRUGS (1)
  1. LYRICA [Suspect]
     Active Substance: PREGABALIN
     Indication: RESTLESSNESS
     Dosage: 150 MG, 3X/DAY SINCE 2 YEARS

REACTIONS (1)
  - Waldenstrom^s macroglobulinaemia [Unknown]
